FAERS Safety Report 11434155 (Version 2)
Quarter: 2015Q4

REPORT INFORMATION
  Report Type: Spontaneous
  Country: US (occurrence: US)
  Receive Date: 20150831
  Receipt Date: 20151103
  Transmission Date: 20160304
  Serious: Yes (Hospitalization)
  Sender: FDA-Public Use
  Company Number: US-BAYER-2015-410348

PATIENT
  Age: 33 Year
  Sex: Female
  Weight: 90.7 kg

DRUGS (3)
  1. MIRENA [Suspect]
     Active Substance: LEVONORGESTREL
     Indication: CONTRACEPTION
     Dosage: 20 MCG/24HR, CONT
     Route: 015
     Dates: start: 20120516, end: 20141007
  2. LEXAPRO [Concomitant]
     Active Substance: ESCITALOPRAM OXALATE
     Indication: BIPOLAR DISORDER
     Dosage: UNK
     Dates: start: 2012, end: 2015
  3. DEPAKOTE [Concomitant]
     Active Substance: DIVALPROEX SODIUM
     Indication: BIPOLAR DISORDER
     Dosage: UNK
     Dates: start: 2012, end: 2015

REACTIONS (10)
  - Genital haemorrhage [None]
  - Uterine perforation [None]
  - Emotional distress [None]
  - Pelvic pain [None]
  - Depression [None]
  - Abdominal pain lower [None]
  - Anxiety [None]
  - Device difficult to use [None]
  - Injury [None]
  - Scar [None]

NARRATIVE: CASE EVENT DATE: 201407
